FAERS Safety Report 9092313 (Version 5)
Quarter: 2016Q3

REPORT INFORMATION
  Report Type: Spontaneous
  Country: US (occurrence: US)
  Receive Date: 20130131
  Receipt Date: 20160727
  Transmission Date: 20161109
  Serious: Yes (Other)
  Sender: FDA-Public Use
  Company Number: US-009507513-1301USA013882

PATIENT
  Sex: Male
  Weight: 105.22 kg

DRUGS (3)
  1. PROPECIA [Suspect]
     Active Substance: FINASTERIDE
     Dosage: 1 MG, UNK
     Route: 048
     Dates: start: 2008, end: 2011
  2. PROSCAR [Suspect]
     Active Substance: FINASTERIDE
     Indication: ANDROGENETIC ALOPECIA
     Dosage: 5 MG, UNK
     Route: 048
     Dates: start: 2008, end: 2011
  3. PROPECIA [Suspect]
     Active Substance: FINASTERIDE
     Indication: ANDROGENETIC ALOPECIA
     Dosage: 1 MG, UNK
     Route: 048
     Dates: start: 1998, end: 1999

REACTIONS (14)
  - Arthralgia [Unknown]
  - Erectile dysfunction [Not Recovered/Not Resolved]
  - Prostatomegaly [Unknown]
  - Heart rate irregular [Unknown]
  - Cognitive disorder [Not Recovered/Not Resolved]
  - Prostatitis [Unknown]
  - Heart rate irregular [Unknown]
  - Abdominal discomfort [Recovering/Resolving]
  - Painful ejaculation [Unknown]
  - Drug administration error [Unknown]
  - Prostatic atrophy [Unknown]
  - Prostate cancer [Recovering/Resolving]
  - Sexual dysfunction [Not Recovered/Not Resolved]
  - Loss of libido [Unknown]

NARRATIVE: CASE EVENT DATE: 200708
